FAERS Safety Report 10396931 (Version 2)
Quarter: 2014Q3

REPORT INFORMATION
  Report Type: Spontaneous
  Country: JP (occurrence: JP)
  Receive Date: 20140820
  Receipt Date: 20140926
  Transmission Date: 20150326
  Serious: Yes (Hospitalization)
  Sender: FDA-Public Use
  Company Number: PHHY2014JP098023

PATIENT
  Age: 65 Year
  Sex: Male

DRUGS (5)
  1. COMTAN [Suspect]
     Active Substance: ENTACAPONE
     Indication: PARKINSON^S DISEASE
     Dosage: 300 MG, DAILY
     Route: 048
     Dates: end: 20140717
  2. NEODOPASTON [Concomitant]
     Active Substance: CARBIDOPA\LEVODOPA
     Dosage: 300 MG, UNK
     Route: 048
     Dates: end: 20140717
  3. COMTAN [Suspect]
     Active Substance: ENTACAPONE
     Dosage: 100 MG, PER DAY
     Route: 048
     Dates: end: 20140717
  4. LEVODOPA [Concomitant]
     Active Substance: LEVODOPA
     Dosage: UNK UKN, UNK
     Route: 048
  5. FP [Concomitant]
     Active Substance: SELEGILINE HYDROCHLORIDE
     Dosage: 2.5 MG, UNK
     Route: 048
     Dates: end: 20140717

REACTIONS (3)
  - Dysphagia [Recovered/Resolved]
  - General physical health deterioration [Recovered/Resolved]
  - Pneumonia [Recovered/Resolved]

NARRATIVE: CASE EVENT DATE: 20140717
